FAERS Safety Report 19635098 (Version 1)
Quarter: 2021Q3

REPORT INFORMATION
  Report Type: Spontaneous
  Country: US (occurrence: US)
  Receive Date: 20210730
  Receipt Date: 20210730
  Transmission Date: 20211014
  Serious: Yes (Other)
  Sender: FDA-Public Use
  Company Number: NVSC2021US166536

PATIENT
  Sex: Female

DRUGS (1)
  1. MAYZENT [Suspect]
     Active Substance: SIPONIMOD
     Indication: RELAPSING MULTIPLE SCLEROSIS
     Dosage: 2 MG, QD (VIA MOUTH)
     Route: 048

REACTIONS (1)
  - Multiple sclerosis [Unknown]
